FAERS Safety Report 11472748 (Version 3)
Quarter: 2015Q4

REPORT INFORMATION
  Report Type: Spontaneous
  Country: FR (occurrence: FR)
  Receive Date: 20150908
  Receipt Date: 20151029
  Transmission Date: 20160304
  Serious: Yes (Other)
  Sender: FDA-Public Use
  Company Number: ALCN2015FR005520

PATIENT
  Age: 76 Year
  Sex: Male

DRUGS (1)
  1. TRAVATAN [Suspect]
     Active Substance: TRAVOPROST
     Indication: PRODUCT USED FOR UNKNOWN INDICATION
     Dosage: UNK
     Route: 047

REACTIONS (15)
  - Apnoea [Unknown]
  - Paraesthesia [Unknown]
  - Dysphonia [Unknown]
  - Bronchospasm [Unknown]
  - Dizziness [Unknown]
  - Hypertension [Unknown]
  - Dry eye [Unknown]
  - Pharyngitis [Unknown]
  - Cough [Unknown]
  - Arthralgia [Unknown]
  - Fatigue [Unknown]
  - Larynx irritation [Unknown]
  - Eye swelling [Unknown]
  - Ocular hyperaemia [Unknown]
  - Throat irritation [Unknown]
